FAERS Safety Report 7828142-9 (Version None)
Quarter: 2011Q4

REPORT INFORMATION
  Report Type: 
  Country: None (occurrence: None)
  Receive Date: 20111019
  Receipt Date: 20111003
  Transmission Date: 20120403
  Serious: Yes (Hospitalization, Other)
  Sender: FDA-Public Use
  Company Number: DSJ-2009-14729

PATIENT
  Age: 55 Year
  Sex: Female
  Weight: 40 kg

DRUGS (2)
  1. OLMESARTAN MEDOXOMIL [Suspect]
     Indication: SUICIDE ATTEMPT
     Dosage: 180 MG,PER ORAL
     Route: 048
  2. NORVASC [Suspect]
     Indication: SUICIDE ATTEMPT
     Dosage: 140 MG,PER ORAL
     Route: 048

REACTIONS (8)
  - BLOOD PRESSURE FLUCTUATION [None]
  - OVERDOSE [None]
  - SUICIDE ATTEMPT [None]
  - TOXICITY TO VARIOUS AGENTS [None]
  - BLOOD ELECTROLYTES ABNORMAL [None]
  - ACID BASE BALANCE ABNORMAL [None]
  - HYPOTENSION [None]
  - SHOCK [None]
